FAERS Safety Report 25215976 (Version 1)
Quarter: 2025Q2

REPORT INFORMATION
  Report Type: Spontaneous
  Country: US (occurrence: US)
  Receive Date: 20250418
  Receipt Date: 20250418
  Transmission Date: 20250716
  Serious: No
  Sender: ROCHE
  Company Number: US-ROCHE-10000252551

PATIENT
  Age: 70 Year
  Sex: Female
  Weight: 64.41 kg

DRUGS (12)
  1. ALECTINIB [Suspect]
     Active Substance: ALECTINIB
     Indication: Non-small cell lung cancer stage II
     Dosage: 2 OF 150MG IN THE MORNING AND 2 OF 150MG AT NIGHT
     Route: 048
     Dates: start: 2024
  2. ALECTINIB [Suspect]
     Active Substance: ALECTINIB
     Dosage: 4 OF 150MG IN THE MORNING AND 4 OF 150MG AT NIGHT
     Route: 048
     Dates: start: 2024, end: 2024
  3. METOPROLOL [Suspect]
     Active Substance: METOPROLOL
     Indication: Cardiac murmur
     Route: 048
     Dates: start: 20250312
  4. METOPROLOL [Suspect]
     Active Substance: METOPROLOL
     Indication: Ventricular hypertrophy
     Route: 048
     Dates: start: 20250218, end: 20250315
  5. METOPROLOL [Suspect]
     Active Substance: METOPROLOL
     Route: 048
     Dates: start: 202310, end: 20250218
  6. LEVOTHYROXINE [Concomitant]
     Active Substance: LEVOTHYROXINE
     Indication: Hypothyroidism
     Route: 048
     Dates: start: 201803
  7. BUPROPION [Concomitant]
     Active Substance: BUPROPION
     Indication: Post-traumatic stress disorder
     Route: 048
  8. BUPROPION [Concomitant]
     Active Substance: BUPROPION
     Route: 048
     Dates: start: 2006
  9. FOLIC ACID [Concomitant]
     Active Substance: FOLIC ACID
     Route: 048
     Dates: start: 202401
  10. VITAMIN B12 [Concomitant]
     Active Substance: CYANOCOBALAMIN
     Dosage: 1/4 OF 1000 UNIT TABLET
     Route: 048
     Dates: start: 202412
  11. VITAMIN B12 [Concomitant]
     Active Substance: CYANOCOBALAMIN
     Route: 048
     Dates: start: 202401, end: 202412
  12. VITAMIN D [Concomitant]
     Active Substance: VITAMIN D NOS
     Indication: Bone loss
     Route: 048
     Dates: start: 202403

REACTIONS (11)
  - Joint swelling [Recovered/Resolved]
  - Fatigue [Not Recovered/Not Resolved]
  - Dyspnoea [Not Recovered/Not Resolved]
  - Dizziness [Not Recovered/Not Resolved]
  - Gait disturbance [Not Recovered/Not Resolved]
  - Ventricular hypertrophy [Not Recovered/Not Resolved]
  - Hypoxia [Unknown]
  - Bone loss [Not Recovered/Not Resolved]
  - Vitamin B12 increased [Unknown]
  - Off label use [Unknown]
  - Renal impairment [Unknown]

NARRATIVE: CASE EVENT DATE: 20240101
